FAERS Safety Report 16024759 (Version 1)
Quarter: 2019Q1

REPORT INFORMATION
  Report Type: Spontaneous
  Country: US (occurrence: US)
  Receive Date: 20190301
  Receipt Date: 20190301
  Transmission Date: 20190418
  Serious: No
  Sender: FDA-Public Use
  Company Number: US-SUNOVION-2019SUN000741

PATIENT
  Sex: Male
  Weight: 83.9 kg

DRUGS (7)
  1. LATUDA [Suspect]
     Active Substance: LURASIDONE HYDROCHLORIDE
     Indication: SCHIZOPHRENIA
     Dosage: 20 MG, QD (1 TABL QAM WITHOUT FOOD)
     Route: 048
     Dates: start: 201902
  2. LATUDA [Suspect]
     Active Substance: LURASIDONE HYDROCHLORIDE
     Indication: DEPRESSION
  3. VIAGRA [Concomitant]
     Active Substance: SILDENAFIL CITRATE
     Dosage: 100 MG
     Route: 065
  4. LOSARTAN. [Concomitant]
     Active Substance: LOSARTAN
     Indication: HYPERTENSION
     Dosage: 100 MG, QD
     Route: 048
  5. TESTOSTERONE ACETATE [Concomitant]
     Active Substance: TESTOSTERONE ACETATE
     Dosage: 1.62%/20.25 PER PUMPACTUATION, BOTH SHOULDERS
     Route: 062
  6. AMLODIPINE [Concomitant]
     Active Substance: AMLODIPINE BESYLATE
     Indication: HYPERTENSION
     Dosage: UNK
     Route: 065
  7. METFORMIN [Concomitant]
     Active Substance: METFORMIN HYDROCHLORIDE
     Indication: DIABETES MELLITUS
     Dosage: 750 MG, QD
     Route: 048

REACTIONS (4)
  - Blood glucose abnormal [Unknown]
  - Musculoskeletal stiffness [Unknown]
  - Bruxism [Recovered/Resolved]
  - Product administration error [Unknown]
